FAERS Safety Report 5053881-5 (Version None)
Quarter: 2006Q3

REPORT INFORMATION
  Report Type: 
  Country: None (occurrence: None)
  Receive Date: 20060712
  Receipt Date: 20060623
  Transmission Date: 20061208
  Serious: Yes (Hospitalization)
  Sender: FDA-Public Use
  Company Number: DE200606003709

PATIENT
  Age: 60 Year
  Sex: Male

DRUGS (4)
  1. CYMBALTA [Suspect]
     Indication: DEPRESSION
     Dosage: 30 MG, DAILY (1/D), ORAL; SEE IMAGE
     Route: 048
     Dates: start: 20060501
  2. CYMBALTA [Suspect]
     Indication: DEPRESSION
     Dosage: 30 MG, DAILY (1/D), ORAL; SEE IMAGE
     Route: 048
     Dates: start: 20060523
  3. NEURONTIN [Concomitant]
  4. STANGYL/GFR/ (TRIMIPRAMINE MALEATE) [Concomitant]

REACTIONS (5)
  - ABDOMINAL PAIN [None]
  - HEADACHE [None]
  - HEPATIC ENZYME ABNORMAL [None]
  - PYREXIA [None]
  - RENAL FUNCTION TEST ABNORMAL [None]
